FAERS Safety Report 7351346-9 (Version None)
Quarter: 2011Q1

REPORT INFORMATION
  Report Type: 
  Country: None (occurrence: None)
  Receive Date: 20110314
  Receipt Date: 20110301
  Transmission Date: 20110831
  Serious: Yes (Other)
  Sender: FDA-Public Use
  Company Number: PHHY2011NL16531

PATIENT
  Sex: Female
  Weight: 61 kg

DRUGS (2)
  1. TEGRETOL [Suspect]
     Indication: EPILEPSY
     Dosage: 200 MG, 2 DAILY DOSES
     Route: 048
     Dates: start: 20110114
  2. TEGRETOL [Suspect]
     Dosage: 300 MG, 2 DAILY DOSES
     Route: 048
     Dates: end: 20110217

REACTIONS (9)
  - COORDINATION ABNORMAL [None]
  - ANGIOEDEMA [None]
  - PARAESTHESIA [None]
  - HEADACHE [None]
  - LOCAL SWELLING [None]
  - EYE SWELLING [None]
  - SWELLING FACE [None]
  - LIP SWELLING [None]
  - DIZZINESS [None]
